FAERS Safety Report 9596549 (Version 2)
Quarter: 2013Q4

REPORT INFORMATION
  Report Type: Spontaneous
  Country: AU (occurrence: AU)
  Receive Date: 20131004
  Receipt Date: 20131017
  Transmission Date: 20140711
  Serious: Yes (Death)
  Sender: FDA-Public Use
  Company Number: AU-NAPPMUNDI-USA-2013-0106974

PATIENT
  Sex: Male

DRUGS (3)
  1. NORSPAN (NDA 21-306) [Suspect]
     Indication: PAIN
     Dosage: UNK
     Route: 062
  2. OXYCONTIN (NDA 22-272) [Suspect]
     Indication: PRODUCT USED FOR UNKNOWN INDICATION
     Dosage: UNK, SEE TEXT
  3. VALIUM /00017001/ [Suspect]
     Indication: PRODUCT USED FOR UNKNOWN INDICATION
     Dosage: UNK, SEE TEXT

REACTIONS (1)
  - Road traffic accident [Fatal]
